FAERS Safety Report 5600317-9 (Version None)
Quarter: 2008Q1

REPORT INFORMATION
  Report Type: 
  Country: None (occurrence: None)
  Receive Date: 20080123
  Receipt Date: 20080118
  Transmission Date: 20080703
  Serious: Yes (Hospitalization)
  Sender: FDA-Public Use
  Company Number: US-BAXTER-2008BH000554

PATIENT
  Age: 77 Year
  Sex: Male
  Weight: 100 kg

DRUGS (10)
  1. HEPARIN SODIUM [Suspect]
     Indication: AORTIC VALVE REPAIR
     Route: 040
     Dates: start: 20080103, end: 20080103
  2. HEPARIN SODIUM [Suspect]
     Route: 040
     Dates: start: 20080103, end: 20080103
  3. HEPARIN SODIUM [Suspect]
     Route: 040
     Dates: start: 20080103, end: 20080103
  4. HEPARIN SODIUM [Suspect]
     Route: 040
     Dates: start: 20080103, end: 20080103
  5. ASPIRIN [Concomitant]
     Indication: DRUG USE FOR UNKNOWN INDICATION
     Route: 065
  6. CRESTOR [Concomitant]
     Indication: DRUG USE FOR UNKNOWN INDICATION
     Route: 065
  7. ZETIA [Concomitant]
     Indication: DRUG USE FOR UNKNOWN INDICATION
     Route: 065
  8. GLUCOSAMINE [Concomitant]
     Indication: DRUG USE FOR UNKNOWN INDICATION
     Route: 065
  9. M.V.I. [Concomitant]
     Indication: DRUG USE FOR UNKNOWN INDICATION
     Dosage: DOSE UNIT:UNKNOWN
     Route: 065
  10. HERBALS NOS W/MINERALS NOS/VITAMINS NOS [Concomitant]
     Indication: DRUG USE FOR UNKNOWN INDICATION
     Dosage: DOSE UNIT:UNKNOWN
     Route: 065

REACTIONS (3)
  - DRUG INEFFECTIVE [None]
  - HYPOTENSION [None]
  - SUPRAVENTRICULAR TACHYCARDIA [None]
